FAERS Safety Report 16533002 (Version 1)
Quarter: 2019Q3

REPORT INFORMATION
  Report Type: Spontaneous
  Country: RU (occurrence: RU)
  Receive Date: 20190705
  Receipt Date: 20190705
  Transmission Date: 20191004
  Serious: Yes (Hospitalization)
  Sender: FDA-Public Use
  Company Number: RU-ASTRAZENECA-2019SE94895

PATIENT
  Age: 1 Year

DRUGS (3)
  1. PULMICORT TURBUHALER [Suspect]
     Active Substance: BUDESONIDE
     Indication: TRACHEITIS
     Dosage: 0.5MG/ML TWO TIMES A DAY
     Route: 055
     Dates: start: 2019
  2. NYSTATIN. [Concomitant]
     Active Substance: NYSTATIN
  3. NYSTATIN. [Concomitant]
     Active Substance: NYSTATIN

REACTIONS (2)
  - Oropharyngeal candidiasis [Recovered/Resolved]
  - Tracheitis [Unknown]
